FAERS Safety Report 22845726 (Version 3)
Quarter: 2024Q4

REPORT INFORMATION
  Report Type: Spontaneous
  Country: US (occurrence: US)
  Receive Date: 20230821
  Receipt Date: 20241227
  Transmission Date: 20250115
  Serious: No
  Sender: PFIZER
  Company Number: US-PFIZER INC-PV202300097631

PATIENT
  Age: 67 Year
  Sex: Female

DRUGS (4)
  1. IBRANCE [Suspect]
     Active Substance: PALBOCICLIB
     Indication: Breast cancer female
     Dosage: 75 MG, DAILY
     Route: 048
     Dates: start: 201704
  2. IBRANCE [Suspect]
     Active Substance: PALBOCICLIB
     Dosage: UNK
     Dates: start: 201807
  3. LETROZOLE [Concomitant]
     Active Substance: LETROZOLE
     Dosage: UNK
     Dates: start: 201704
  4. LETROZOLE [Concomitant]
     Active Substance: LETROZOLE
     Dosage: UNK
     Dates: start: 201807

REACTIONS (2)
  - Neoplasm recurrence [Unknown]
  - Product prescribing error [Unknown]
